FAERS Safety Report 7580617-6 (Version None)
Quarter: 2011Q2

REPORT INFORMATION
  Report Type: 
  Country: None (occurrence: None)
  Receive Date: 20110629
  Receipt Date: 20110524
  Transmission Date: 20111010
  Serious: Yes (Hospitalization)
  Sender: FDA-Public Use
  Company Number: D0071533A

PATIENT
  Sex: Female
  Weight: 88 kg

DRUGS (3)
  1. TROBALT (EZOGABINE) [Suspect]
     Indication: EPILEPSY
     Dosage: 200MG THREE TIMES PER DAY
     Route: 048
     Dates: start: 20110516, end: 20110524
  2. RISPERDAL [Concomitant]
     Dosage: 1MG PER DAY
     Route: 065
  3. VIMPAT [Suspect]
     Dosage: 400MG PER DAY
     Route: 065

REACTIONS (1)
  - STATUS EPILEPTICUS [None]
